FAERS Safety Report 6081217-X (Version None)
Quarter: 2009Q1

REPORT INFORMATION
  Report Type: 
  Country: None (occurrence: None)
  Receive Date: 20090213
  Receipt Date: 20090131
  Transmission Date: 20090719
  Serious: Yes (Other)
  Sender: FDA-Public Use
  Company Number: 233329K08USA

PATIENT
  Age: 34 Year
  Sex: Female
  Weight: 73 kg

DRUGS (7)
  1. REBIF [Suspect]
     Indication: MULTIPLE SCLEROSIS
     Dosage: SEE IMAGE
     Route: 058
     Dates: start: 20081107, end: 20081201
  2. REBIF [Suspect]
     Indication: MULTIPLE SCLEROSIS
     Dosage: SEE IMAGE
     Route: 058
     Dates: start: 20081201, end: 20081219
  3. REBIF [Suspect]
     Indication: MULTIPLE SCLEROSIS
     Dosage: SEE IMAGE
     Route: 058
     Dates: start: 20081229
  4. CYMBALTA [Concomitant]
  5. ADDERALL (OBETROL /01345401/) [Concomitant]
  6. ARICEPT [Concomitant]
  7. ABILIFY [Concomitant]

REACTIONS (1)
  - ANAPHYLACTIC REACTION [None]
